FAERS Safety Report 20551780 (Version 3)
Quarter: 2024Q4

REPORT INFORMATION
  Report Type: Spontaneous
  Country: IN (occurrence: IN)
  Receive Date: 20220304
  Receipt Date: 20241128
  Transmission Date: 20250114
  Serious: Yes (Other)
  Sender: PFIZER
  Company Number: IN-PFIZER INC-202200308800

PATIENT
  Age: 67 Year
  Sex: Female
  Weight: 80 kg

DRUGS (4)
  1. AROMASIN [Suspect]
     Active Substance: EXEMESTANE
     Indication: Breast cancer female
     Dosage: UNK
     Dates: start: 202108
  2. AROMASIN [Suspect]
     Active Substance: EXEMESTANE
     Dosage: 25 MG, 1X/DAY
     Route: 048
  3. SHELCAL CT [Concomitant]
     Dosage: UNK UNK, DAILY
  4. VITAMIN D NOS [Concomitant]
     Active Substance: CHOLECALCIFEROL\ERGOCALCIFEROL
     Dosage: 60000 IU

REACTIONS (11)
  - Blood thyroid stimulating hormone decreased [Recovering/Resolving]
  - Vitamin B12 decreased [Recovered/Resolved]
  - Blood pressure increased [Not Recovered/Not Resolved]
  - Hepatic steatosis [Unknown]
  - Uterine leiomyoma [Unknown]
  - Glucose urine present [Unknown]
  - Glycosylated haemoglobin increased [Not Recovered/Not Resolved]
  - Vitamin D decreased [Unknown]
  - Glycosuria [Unknown]
  - Rash [Unknown]
  - Blood thyroid stimulating hormone increased [Unknown]

NARRATIVE: CASE EVENT DATE: 20231106
